FAERS Safety Report 9302231 (Version 1)
Quarter: 2013Q2

REPORT INFORMATION
  Report Type: Spontaneous
  Country: FR (occurrence: FR)
  Receive Date: 20130522
  Receipt Date: 20130522
  Transmission Date: 20140414
  Serious: Yes (Hospitalization)
  Sender: FDA-Public Use
  Company Number: FR-B.I. PHARMACEUTICALS,INC./RIDGEFIELD-2013-FF-01427FF

PATIENT
  Age: 94 Year
  Sex: Female

DRUGS (8)
  1. PRADAXA [Suspect]
     Indication: EMBOLISM
     Route: 048
     Dates: start: 20121217, end: 20130318
  2. HYDREA [Suspect]
     Indication: ESSENTIAL THROMBOCYTHAEMIA
     Dosage: 500 MG
     Route: 048
     Dates: end: 201303
  3. LEVOTHYROX [Concomitant]
     Dosage: 25 MCG
     Route: 048
  4. STRESAM [Concomitant]
     Route: 048
  5. TRIATEC [Concomitant]
     Dosage: 1.25 MG
     Route: 048
  6. DISCOTRINE [Concomitant]
     Dosage: 10MG/24HOURS
     Route: 062
  7. LASILIX [Concomitant]
     Dosage: 40 MG
     Route: 048
  8. LAROXYL [Concomitant]
     Dosage: 40MG/ML;10 DROPS PER DAY
     Route: 048

REACTIONS (1)
  - Anaemia [Not Recovered/Not Resolved]
